APPROVED DRUG PRODUCT: DIFLORASONE DIACETATE
Active Ingredient: DIFLORASONE DIACETATE
Strength: 0.05%
Dosage Form/Route: OINTMENT;TOPICAL
Application: A210753 | Product #001 | TE Code: AB
Applicant: THE J MOLNER CO OU
Approved: Jun 12, 2018 | RLD: No | RS: No | Type: RX